FAERS Safety Report 20340735 (Version 2)
Quarter: 2022Q1

REPORT INFORMATION
  Report Type: Spontaneous
  Country: US (occurrence: US)
  Receive Date: 20220117
  Receipt Date: 20220118
  Transmission Date: 20220423
  Serious: Yes (Other)
  Sender: FDA-Public Use
  Company Number: US-PFIZER INC-202200028625

PATIENT
  Age: 78 Year
  Sex: Female
  Weight: 54.43 kg

DRUGS (3)
  1. NORVASC [Suspect]
     Active Substance: AMLODIPINE BESYLATE
     Indication: Hypertension
     Dosage: 5 MG, 1X/DAY
     Route: 048
  2. BENICAR [Concomitant]
     Active Substance: OLMESARTAN MEDOXOMIL
     Indication: Cardiac disorder
     Dosage: 20 MG, 1X/DAY (BEEN TAKING IT FOR AT LEAST 10 YEARS)
  3. LESCOL [Concomitant]
     Active Substance: FLUVASTATIN SODIUM
     Indication: Blood cholesterol increased
     Dosage: 80 MG, 1X/DAY (TAKING FOR AT LEAST 20 YEARS)

REACTIONS (5)
  - Glaucoma [Unknown]
  - Cataract [Recovered/Resolved]
  - Exfoliation syndrome [Unknown]
  - Peripheral swelling [Not Recovered/Not Resolved]
  - Musculoskeletal stiffness [Unknown]

NARRATIVE: CASE EVENT DATE: 20160101
